FAERS Safety Report 4634938-7 (Version None)
Quarter: 2005Q2

REPORT INFORMATION
  Report Type: 
  Country: None (occurrence: None)
  Receive Date: 20050414
  Receipt Date: 20050401
  Transmission Date: 20051028
  Serious: Yes (Other)
  Sender: FDA-Public Use
  Company Number: DE-JNJFOC-20050400706

PATIENT
  Age: 35 Year
  Sex: Male

DRUGS (4)
  1. HALDOL [Suspect]
     Route: 049
  2. RISPERDAL [Suspect]
     Route: 049
  3. EUNERPAN [Suspect]
     Route: 049
  4. DIAZEPAM [Suspect]
     Route: 049

REACTIONS (1)
  - ELECTROCARDIOGRAM QT CORRECTED INTERVAL PROLONGED [None]
